FAERS Safety Report 22237094 (Version 1)
Quarter: 2023Q2

REPORT INFORMATION
  Report Type: Spontaneous
  Country: US (occurrence: None)
  Receive Date: 20230421
  Receipt Date: 20230421
  Transmission Date: 20230721
  Serious: No
  Sender: FDA-Public Use
  Company Number: US-ROCHE-3291413

PATIENT
  Age: 74 Year
  Sex: Male

DRUGS (4)
  1. ESBRIET [Suspect]
     Active Substance: PIRFENIDONE
     Indication: Idiopathic pulmonary fibrosis
     Dosage: 801MG
     Route: 048
  2. VALSARTAN [Concomitant]
     Active Substance: VALSARTAN
     Route: 048
  3. COD LIVER OIL [Concomitant]
     Active Substance: COD LIVER OIL
  4. FISH OIL [Concomitant]
     Active Substance: FISH OIL
     Route: 048

REACTIONS (5)
  - Rash [Not Recovered/Not Resolved]
  - Acne [Not Recovered/Not Resolved]
  - Dry skin [Not Recovered/Not Resolved]
  - Weight decreased [Not Recovered/Not Resolved]
  - Insomnia [Recovered/Resolved]
